FAERS Safety Report 8294029-3 (Version None)
Quarter: 2012Q2

REPORT INFORMATION
  Report Type: 
  Country: None (occurrence: None)
  Receive Date: 20120413
  Receipt Date: 20120413
  Transmission Date: 20120825
  Serious: No
  Sender: FDA-Public Use
  Company Number: None

PATIENT
  Age: 53 Year
  Sex: Female

DRUGS (1)
  1. ENBREL [Suspect]
     Dates: start: 20030926, end: 20040826

REACTIONS (5)
  - HEPATIC FIBROSIS [None]
  - BILIARY CIRRHOSIS PRIMARY [None]
  - GRANULOMATOUS LIVER DISEASE [None]
  - ASPARTATE AMINOTRANSFERASE INCREASED [None]
  - ALANINE AMINOTRANSFERASE INCREASED [None]
